FAERS Safety Report 11887948 (Version 1)
Quarter: 2016Q1

REPORT INFORMATION
  Report Type: Spontaneous
  Country: US (occurrence: None)
  Receive Date: 20160104
  Receipt Date: 20160104
  Transmission Date: 20160526
  Serious: Yes (Disabling)
  Sender: FDA-Public Use
  Company Number: None

PATIENT
  Age: 75 Year
  Sex: Female
  Weight: 72.12 kg

DRUGS (11)
  1. TYLENOL [Suspect]
     Active Substance: ACETAMINOPHEN
  2. MAGNESIUM [Concomitant]
     Active Substance: MAGNESIUM
  3. CALCIUM VIT. B COMPELX [Concomitant]
  4. MULTIMIN [Concomitant]
  5. ANTI-OXIDANTS [Concomitant]
     Dosage: 1 PILL
     Route: 048
     Dates: start: 20151222, end: 20151224
  6. OMEPRZOLE 20 MG. SANDOZ [Suspect]
     Active Substance: OMEPRAZOLE
     Indication: DYSPEPSIA
     Dosage: PILL
     Route: 048
     Dates: start: 20151222, end: 20151224
  7. COLACE VITM CO [Concomitant]
  8. ALEVE [Concomitant]
     Active Substance: NAPROXEN SODIUM
  9. RED RICE YEAST [Concomitant]
     Active Substance: DIETARY SUPPLEMENT
  10. DOXEPIN [Concomitant]
     Active Substance: DOXEPIN
  11. ASMANEX [Concomitant]
     Active Substance: MOMETASONE FUROATE

REACTIONS (1)
  - Asthma [None]

NARRATIVE: CASE EVENT DATE: 20151222
